FAERS Safety Report 4632772-5 (Version None)
Quarter: 2005Q2

REPORT INFORMATION
  Report Type: 
  Country: None (occurrence: None)
  Receive Date: 20050408
  Receipt Date: 20050408
  Transmission Date: 20051028
  Serious: Yes (Hospitalization)
  Sender: FDA-Public Use
  Company Number: None

PATIENT
  Sex: Female
  Weight: 86.2 kg

DRUGS (2)
  1. IMATINIB MESYLATE 100 MG CAPSULES, NOVARTIS [Suspect]
     Indication: GLIOBLASTOMA MULTIFORME
     Dosage: 400 MG PO BID X 8 DAYS
     Route: 048
     Dates: start: 20050311, end: 20050318
  2. TEMOZOLOMIDE, SCHERING-PLOUGH [Concomitant]
     Indication: GLIOBLASTOMA MULTIFORME
     Dosage: 420 MG, PO QD X 5 DAYS
     Route: 048
     Dates: start: 20050314, end: 20050318

REACTIONS (7)
  - APHASIA [None]
  - BRAIN OEDEMA [None]
  - COGNITIVE DISORDER [None]
  - CONFUSIONAL STATE [None]
  - FALL [None]
  - FEELING ABNORMAL [None]
  - SINUSITIS [None]
